FAERS Safety Report 15770104 (Version 1)
Quarter: 2018Q4

REPORT INFORMATION
  Report Type: Spontaneous
  Country: US (occurrence: US)
  Receive Date: 20181228
  Receipt Date: 20181228
  Transmission Date: 20190205
  Serious: No
  Sender: FDA-Public Use
  Company Number: US-PFIZER INC-2018531316

PATIENT
  Age: 50 Year
  Sex: Female

DRUGS (2)
  1. GENOTROPIN MQ [Suspect]
     Active Substance: SOMATROPIN
     Indication: FATIGUE
  2. GENOTROPIN MQ [Suspect]
     Active Substance: SOMATROPIN
     Indication: GLUCOCORTICOID DEFICIENCY
     Dosage: 0.6 MG, DAILY

REACTIONS (5)
  - Product use in unapproved indication [Unknown]
  - Insulin-like growth factor increased [Unknown]
  - Blood sodium increased [Unknown]
  - Blood corticotrophin decreased [Unknown]
  - Blood triglycerides decreased [Unknown]

NARRATIVE: CASE EVENT DATE: 20180830
